FAERS Safety Report 8775675 (Version 2)
Quarter: 2012Q4

REPORT INFORMATION
  Report Type: 
  Country: AU (occurrence: AU)
  Receive Date: 20120908
  Receipt Date: 20120925
  Transmission Date: 20130627
  Serious: Yes (Death, Congenital Anomaly, Other)
  Sender: FDA-Public Use
  Company Number: AU-ABBOTT-12P-008-0975416-00

PATIENT

DRUGS (1)
  1. HUMIRA 40 MG/ 0.8 ML PRE-FILLED SYRINGE [Suspect]
     Indication: MATERNAL EXPOSURE TIMING UNSPECIFIED
     Route: 064

REACTIONS (9)
  - Stillbirth [Fatal]
  - Foetal exposure during pregnancy [Unknown]
  - Hydrops foetalis [Unknown]
  - Pericardial effusion [Unknown]
  - Cardiomegaly [Unknown]
  - Ascites [Unknown]
  - Pleural effusion [Unknown]
  - Anaemia [Unknown]
  - Parvovirus infection [Unknown]
